FAERS Safety Report 7816057-1 (Version None)
Quarter: 2011Q4

REPORT INFORMATION
  Report Type: 
  Country: None (occurrence: None)
  Receive Date: 20111015
  Receipt Date: 20111010
  Transmission Date: 20120403
  Serious: Yes (Life-Threatening, Disabling)
  Sender: FDA-Public Use
  Company Number: FR-ASTRAZENECA-2011SE60830

PATIENT
  Age: 21745 Day
  Sex: Male

DRUGS (2)
  1. DIPRIVAN [Suspect]
     Indication: INDUCTION OF ANAESTHESIA
     Route: 042
     Dates: start: 20090219, end: 20090219
  2. CELOCURINE [Suspect]
     Indication: INDUCTION OF ANAESTHESIA
     Route: 042
     Dates: start: 20090219, end: 20090219

REACTIONS (18)
  - VENTRICULAR EXTRASYSTOLES [None]
  - COGNITIVE DISORDER [None]
  - COMA [None]
  - VENTRICULAR FIBRILLATION [None]
  - CIRCULATORY COLLAPSE [None]
  - BRAIN OEDEMA [None]
  - MOVEMENT DISORDER [None]
  - MUSCLE SPASTICITY [None]
  - GAZE PALSY [None]
  - STEREOTYPY [None]
  - BRADYCARDIA [None]
  - UNRESPONSIVE TO STIMULI [None]
  - CARDIAC ARREST [None]
  - ATRIAL FIBRILLATION [None]
  - HYPOXIA [None]
  - EXCESSIVE EYE BLINKING [None]
  - HEMIPLEGIA [None]
  - EXTRAPYRAMIDAL DISORDER [None]
